FAERS Safety Report 25112745 (Version 4)
Quarter: 2025Q4

REPORT INFORMATION
  Report Type: Spontaneous
  Country: US (occurrence: None)
  Receive Date: 20250324
  Receipt Date: 20251031
  Transmission Date: 20260118
  Serious: No
  Sender: UCB
  Company Number: US-UCBSA-2024065481

PATIENT
  Weight: 81.633 kg

DRUGS (3)
  1. BIMZELX [Suspect]
     Active Substance: BIMEKIZUMAB-BKZX
     Indication: Psoriasis
     Dosage: 320 MILLIGRAM, EV 4 WEEKS
  2. BIMZELX [Suspect]
     Active Substance: BIMEKIZUMAB-BKZX
     Dosage: 320 MILLIGRAM, EV 8 WEEKS
  3. ESSENTIAL OIL [Concomitant]
     Active Substance: 1,2-BUTANEDIOL\ALLANTOIN
     Indication: Product used for unknown indication
     Dosage: UNK

REACTIONS (3)
  - Cutaneous symptom [Unknown]
  - Psoriasis [Unknown]
  - Product prescribing issue [Unknown]
